FAERS Safety Report 6702284-3 (Version None)
Quarter: 2010Q2

REPORT INFORMATION
  Report Type: 
  Country: None (occurrence: None)
  Receive Date: 20100429
  Receipt Date: 20100420
  Transmission Date: 20101027
  Serious: Yes (Other)
  Sender: FDA-Public Use
  Company Number: GXKR2010AR04459

PATIENT
  Age: 68 Year
  Sex: Female

DRUGS (2)
  1. ALENDRONIC ACID (NGX) [Suspect]
     Indication: OSTEOPOROSIS
     Dosage: 10 MG/DAY
  2. ALENDRONIC ACID (NGX) [Suspect]
     Dosage: 70 MG/WEEK

REACTIONS (3)
  - FEMUR FRACTURE [None]
  - FRACTURED ISCHIUM [None]
  - PELVIC FRACTURE [None]
